FAERS Safety Report 23659733 (Version 1)
Quarter: 2024Q1

REPORT INFORMATION
  Report Type: Spontaneous
  Country: US (occurrence: US)
  Receive Date: 20240321
  Receipt Date: 20240321
  Transmission Date: 20240410
  Serious: No
  Sender: FDA-Public Use
  Company Number: US-SANOFI-01980263

PATIENT

DRUGS (1)
  1. CERDELGA [Suspect]
     Active Substance: ELIGLUSTAT
     Indication: Gaucher^s disease type I
     Dosage: UNK
     Route: 065

REACTIONS (9)
  - Pruritus [Unknown]
  - Retching [Unknown]
  - Secretion discharge [Unknown]
  - Ageusia [Unknown]
  - Brain fog [Unknown]
  - Gastrointestinal disorder [Unknown]
  - Decreased appetite [Unknown]
  - Skin exfoliation [Unknown]
  - Fatigue [Unknown]
